FAERS Safety Report 10501496 (Version 1)
Quarter: 2014Q4

REPORT INFORMATION
  Report Type: Spontaneous
  Country: US (occurrence: None)
  Receive Date: 20141006
  Receipt Date: 20141006
  Transmission Date: 20150528
  Serious: No
  Sender: FDA-Public Use
  Company Number: None

PATIENT
  Age: 51 Year
  Sex: Male

DRUGS (13)
  1. LETARIS [Suspect]
     Active Substance: AMBRISENTAN
     Indication: PULMONARY HYPERTENSION
     Route: 048
     Dates: start: 20130830, end: 20140715
  2. METFORMIN [Concomitant]
     Active Substance: METFORMIN HYDROCHLORIDE
  3. NADOLOL. [Concomitant]
     Active Substance: NADOLOL
  4. BUPROPRION [Concomitant]
     Active Substance: BUPROPION
  5. GAVILYTE [Concomitant]
  6. NORCO [Concomitant]
     Active Substance: ACETAMINOPHEN\HYDROCODONE BITARTRATE
  7. SILDENAFIL. [Concomitant]
     Active Substance: SILDENAFIL
  8. CARAFATE [Concomitant]
     Active Substance: SUCRALFATE
  9. GLIPIZIDE. [Concomitant]
     Active Substance: GLIPIZIDE
  10. OMPERAZOLE [Concomitant]
     Active Substance: OMEPRAZOLE
  11. SIMVASTATIN. [Concomitant]
     Active Substance: SIMVASTATIN
  12. LISINOPRIL. [Concomitant]
     Active Substance: LISINOPRIL
  13. HUMULIN N [Concomitant]
     Active Substance: INSULIN HUMAN

REACTIONS (1)
  - Hepatic enzyme increased [None]

NARRATIVE: CASE EVENT DATE: 20140815
